FAERS Safety Report 8511544-5 (Version None)
Quarter: 2012Q3

REPORT INFORMATION
  Report Type: 
  Country: None (occurrence: None)
  Receive Date: 20120716
  Receipt Date: 20120703
  Transmission Date: 20120928
  Serious: Yes (Hospitalization)
  Sender: FDA-Public Use
  Company Number: PHEH2012US013229

PATIENT
  Sex: Female

DRUGS (30)
  1. ZYLOPRIM [Concomitant]
     Dosage: 100 MG, UNK
  2. AMLODIPINE [Concomitant]
     Dosage: 10 MG, UNK
  3. VITAMIN B-12 [Concomitant]
     Dosage: 25 MCG DAILY
  4. INSULIN [Concomitant]
     Dosage: 28 U, UNK
  5. MIRALAX [Concomitant]
     Dosage: 17 G, UNK
  6. PHENERGAN HCL [Concomitant]
     Dosage: UNK UKN, UNK
  7. ASPIRIN [Concomitant]
     Dosage: 325 MG, UNK
  8. PREDNISONE [Concomitant]
     Dosage: 5 MG, DAILY
  9. FUROSEMIDE [Concomitant]
     Dosage: 80 MG, UNK
  10. CLONIDINE [Concomitant]
     Dosage: 0.1 MG, UNK
  11. AMITRIPTYLINE HCL [Concomitant]
     Dosage: 25 MG, UNK
  12. NEURONTIN [Concomitant]
     Dosage: 100 MG, TID
  13. KLONOPIN [Concomitant]
     Dosage: 1 MG, TID
  14. ATARAX [Concomitant]
     Dosage: UNK UKN, UNK
  15. ZEMPLAR [Concomitant]
     Dosage: 2 MCG
  16. HYDRALAZINE HYDROCHLORIDE [Concomitant]
     Dosage: 25 MG, TID
  17. NORCO [Concomitant]
     Dosage: 5 DF, UNK
  18. MYFORTIC [Suspect]
     Dosage: 360 MG, BID
     Route: 048
  19. VITAMIN D [Concomitant]
     Dosage: 2000 U, UNK
  20. PEPCID [Concomitant]
     Dosage: 20 MG, BID
  21. LASIX [Concomitant]
     Dosage: 160 MG, UNK
  22. GABAPENTIN [Concomitant]
     Dosage: 100 MG, UNK
  23. ALBUTEROL [Concomitant]
     Dosage: UNK UKN, UNK
  24. ALLOPURINOL [Concomitant]
     Dosage: 100 MG, BID
  25. COLCHICINE [Concomitant]
     Dosage: 6 MG, UNK
  26. NEXIUM [Concomitant]
     Dosage: UNK UKN, UNK
  27. SENSIPAR [Concomitant]
     Dosage: 30 MG, UNK
  28. LIPITOR [Concomitant]
     Dosage: 20 MG, DAILY
  29. LOVENOX [Concomitant]
     Dosage: 30 MG, UNK
  30. PARICALCITOL [Concomitant]
     Dosage: UNK UKN, UNK

REACTIONS (19)
  - CHRONIC ALLOGRAFT NEPHROPATHY [None]
  - LUNG CONSOLIDATION [None]
  - COMPLICATIONS OF TRANSPLANTED KIDNEY [None]
  - RENAL FAILURE CHRONIC [None]
  - ASTHENIA [None]
  - GENERALISED OEDEMA [None]
  - FLUID OVERLOAD [None]
  - PLEURAL EFFUSION [None]
  - HYPONATRAEMIA [None]
  - BONE METABOLISM DISORDER [None]
  - IRON DEFICIENCY [None]
  - METABOLIC ACIDOSIS [None]
  - PULMONARY OEDEMA [None]
  - DYSPNOEA [None]
  - HYPERTENSION [None]
  - RENAL INJURY [None]
  - NEPHROGENIC ANAEMIA [None]
  - DIZZINESS [None]
  - ARTERIOVENOUS GRAFT SITE INFECTION [None]
